FAERS Safety Report 7767749-4 (Version None)
Quarter: 2011Q3

REPORT INFORMATION
  Report Type: 
  Country: None (occurrence: None)
  Receive Date: 20110922
  Receipt Date: 20110608
  Transmission Date: 20111222
  Serious: No
  Sender: FDA-Public Use
  Company Number: US-ASTRAZENECA-2011SE35173

PATIENT
  Age: 48 Year
  Sex: Male
  Weight: 111.1 kg

DRUGS (9)
  1. SEROQUEL XR [Suspect]
     Indication: DEPRESSION
     Route: 048
  2. SEROQUEL XR [Suspect]
     Route: 048
  3. SEROQUEL XR [Suspect]
     Route: 048
  4. CELEXA [Concomitant]
  5. LITHIUM CARBONATE [Concomitant]
  6. DIAZEPAM [Concomitant]
  7. DEPAKOTE [Concomitant]
  8. SEROQUEL XR [Suspect]
     Indication: AFFECTIVE DISORDER
     Route: 048
  9. XANAX [Concomitant]

REACTIONS (2)
  - HEAT RASH [None]
  - FLUSHING [None]
